FAERS Safety Report 11145504 (Version 1)
Quarter: 2015Q2

REPORT INFORMATION
  Report Type: Spontaneous
  Country: JP (occurrence: JP)
  Receive Date: 20150528
  Receipt Date: 20150528
  Transmission Date: 20150821
  Serious: Yes (Hospitalization)
  Sender: FDA-Public Use
  Company Number: PHHY2015JP063704

PATIENT
  Age: 51 Year
  Sex: Female

DRUGS (1)
  1. ZOLEDRONATE [Suspect]
     Active Substance: ZOLEDRONIC ACID
     Indication: METASTASES TO SPINE
     Dosage: 4 MG, QMO
     Route: 065

REACTIONS (5)
  - Bone erosion [Unknown]
  - Osteonecrosis of jaw [Recovered/Resolved]
  - Fistula [Unknown]
  - Purulent discharge [Unknown]
  - Tooth loss [Unknown]
